FAERS Safety Report 12901156 (Version 2)
Quarter: 2016Q4

REPORT INFORMATION
  Report Type: Report from Study
  Country: None (occurrence: IT)
  Receive Date: 20161101
  Receipt Date: 20161107
  Transmission Date: 20170207
  Serious: Yes (Hospitalization)
  Sender: FDA-Public Use
  Company Number: IT-ABBVIE-16P-083-1768016-00

PATIENT
  Age: 66 Year
  Sex: Female
  Weight: 47 kg

DRUGS (1)
  1. DUODOPA [Suspect]
     Active Substance: CARBIDOPA\LEVODOPA
     Indication: PARKINSON^S DISEASE
     Dosage: MD 4(+3), CR 1.6, ED 1.2
     Route: 050
     Dates: start: 20161017, end: 20161027

REACTIONS (2)
  - Stoma site infection [Unknown]
  - Ascites [Unknown]

NARRATIVE: CASE EVENT DATE: 20161024
